FAERS Safety Report 10961795 (Version 1)
Quarter: 2015Q1

REPORT INFORMATION
  Report Type: Report from Study
  Country: BE (occurrence: BE)
  Receive Date: 20150327
  Receipt Date: 20150327
  Transmission Date: 20150721
  Serious: Yes (Other)
  Sender: FDA-Public Use
  Company Number: PHHY2015BE033791

PATIENT
  Age: 37 Year
  Sex: Female
  Weight: 112 kg

DRUGS (8)
  1. CALCIUM CARBONATE. [Concomitant]
     Active Substance: CALCIUM CARBONATE
     Indication: OSTEOPENIA
     Dosage: 1 G, QD
     Route: 065
     Dates: start: 201402
  2. VITAMIN D [Concomitant]
     Active Substance: CHOLECALCIFEROL
     Indication: OSTEOPENIA
     Dosage: 1 DF, QMO, 1 AMP. MONTHLY
     Route: 065
     Dates: start: 201402
  3. SIMVASTATIN. [Concomitant]
     Active Substance: SIMVASTATIN
     Indication: HYPERCHOLESTEROLAEMIA
     Dosage: 20 MG, QD
     Route: 065
     Dates: start: 201402, end: 20150306
  4. COVERSYL//PERINDOPRIL ARGININE [Concomitant]
     Indication: HYPERTENSION
     Dosage: 5 MG/KG, UNK
     Route: 065
     Dates: start: 201404
  5. PANTOMED//PANTOPRAZOLE SODIUM SESQUIHYDRATE [Concomitant]
     Dosage: 40 MG, UNK
     Dates: start: 20150306
  6. SOM230 [Suspect]
     Active Substance: PASIREOTIDE
     Indication: PITUITARY-DEPENDENT CUSHING^S SYNDROME
     Dosage: 600 UG X 2/J
     Route: 058
     Dates: start: 20150209, end: 20150306
  7. SIMVASTATIN. [Concomitant]
     Active Substance: SIMVASTATIN
     Dosage: UNK
     Route: 065
     Dates: start: 20150311
  8. PANTOMED//PANTOPRAZOLE SODIUM SESQUIHYDRATE [Concomitant]
     Indication: ABDOMINAL PAIN UPPER
     Dosage: 20 MG, UNK
     Route: 065
     Dates: start: 20150210, end: 20150305

REACTIONS (4)
  - Aspartate aminotransferase increased [Recovering/Resolving]
  - Abdominal pain upper [Recovering/Resolving]
  - Alanine aminotransferase increased [Recovering/Resolving]
  - Blood alkaline phosphatase increased [Recovering/Resolving]

NARRATIVE: CASE EVENT DATE: 20150306
